FAERS Safety Report 23936428 (Version 7)
Quarter: 2024Q4

REPORT INFORMATION
  Report Type: Spontaneous
  Country: BR (occurrence: BR)
  Receive Date: 20240604
  Receipt Date: 20241017
  Transmission Date: 20250115
  Serious: Yes (Life-Threatening)
  Sender: MERCK
  Company Number: BR-009507513-2405BRA009837

PATIENT
  Age: 33 Year
  Sex: Female
  Weight: 49 kg

DRUGS (6)
  1. WELIREG [Suspect]
     Active Substance: BELZUTIFAN
     Indication: Renal cancer
     Dosage: 3 TABLETS OF 40 MG EACH ONCE A DAY IN THE MORNING AT 6:00 AM
     Route: 048
     Dates: start: 20240424, end: 2024
  2. WELIREG [Suspect]
     Active Substance: BELZUTIFAN
     Dosage: 3 TABLETS OF 40 MG EACH ONCE A DAY IN THE MORNING AT 6:00 AM
     Route: 048
     Dates: start: 20240529, end: 2024
  3. WELIREG [Suspect]
     Active Substance: BELZUTIFAN
     Dosage: 3 TABLETS OF 40 MG EACH ONCE A DAY IN THE MORNING AT 6:00 AM
     Route: 048
     Dates: start: 20240629, end: 2024
  4. WELIREG [Suspect]
     Active Substance: BELZUTIFAN
     Dosage: 3 TABLETS OF 40 MG EACH ONCE A DAY IN THE MORNING AT 6:00 AM
     Route: 048
     Dates: start: 2024
  5. VITAMIN D NOS [Concomitant]
     Active Substance: CHOLECALCIFEROL\ERGOCALCIFEROL
     Dosage: 10,000 IU PER DAY
  6. LINOLENIC ACID [Concomitant]
     Active Substance: LINOLENIC ACID

REACTIONS (19)
  - Product dose omission issue [Recovered/Resolved]
  - Spinal osteoarthritis [Recovering/Resolving]
  - Nausea [Not Recovered/Not Resolved]
  - Somnolence [Recovered/Resolved]
  - Product distribution issue [Recovered/Resolved]
  - Fatigue [Not Recovered/Not Resolved]
  - Diarrhoea [Recovered/Resolved]
  - Malaise [Recovered/Resolved]
  - Pulmonary mass [Unknown]
  - Renal mass [Recovering/Resolving]
  - Renal neoplasm [Unknown]
  - Renal cyst [Unknown]
  - Asthenia [Recovered/Resolved]
  - Defaecation urgency [Not Recovered/Not Resolved]
  - Anaemia [Not Recovered/Not Resolved]
  - Blood erythropoietin decreased [Recovered/Resolved]
  - Pain in extremity [Not Recovered/Not Resolved]
  - Pharyngitis [Recovered/Resolved]
  - Urinary tract infection [Recovered/Resolved]

NARRATIVE: CASE EVENT DATE: 20240101
